FAERS Safety Report 7883979-5 (Version None)
Quarter: 2011Q4

REPORT INFORMATION
  Report Type: 
  Country: None (occurrence: None)
  Receive Date: 20111102
  Receipt Date: 20111026
  Transmission Date: 20120403
  Serious: Yes (Hospitalization)
  Sender: FDA-Public Use
  Company Number: PHHY2011BR95186

PATIENT
  Sex: Female

DRUGS (2)
  1. GALVUS MET [Suspect]
     Dosage: 1000/50 MG
  2. DIOVAN HCT [Suspect]
     Dosage: 160/12.5MG

REACTIONS (3)
  - BLOOD GLUCOSE INCREASED [None]
  - INFECTION [None]
  - DIABETES MELLITUS INADEQUATE CONTROL [None]
